FAERS Safety Report 7933519-7 (Version None)
Quarter: 2011Q4

REPORT INFORMATION
  Report Type: 
  Country: None (occurrence: None)
  Receive Date: 20111118
  Receipt Date: 20111114
  Transmission Date: 20120403
  Serious: Yes (Hospitalization)
  Sender: FDA-Public Use
  Company Number: WAES 1111USA01733

PATIENT
  Age: 82 Year
  Sex: Male

DRUGS (9)
  1. POTASSIUM CHLORIDE [Concomitant]
  2. METOPROLOL TARTRATE [Concomitant]
  3. DECADRON [Suspect]
     Indication: MULTIPLE MYELOMA
     Dosage: UNK/UNK/PO
     Route: 048
     Dates: start: 20110614
  4. BORTEZOMIB [Suspect]
     Indication: MULTIPLE MYELOMA
     Dosage: UNK/UNK/UNK
     Dates: start: 20110705, end: 20110815
  5. BORTEZOMIB [Suspect]
     Indication: MULTIPLE MYELOMA
     Dosage: UNK/UNK/UNK
     Dates: start: 20110614, end: 20110624
  6. LOMOTIL [Concomitant]
  7. SIMVASTATIN [Concomitant]
  8. OMEPRAZOLE [Concomitant]
  9. PAMIDRONATE DISODIUM [Concomitant]

REACTIONS (40)
  - DIZZINESS [None]
  - CARBON DIOXIDE DECREASED [None]
  - PRESYNCOPE [None]
  - FALL [None]
  - HYPOAESTHESIA [None]
  - BLOOD SODIUM DECREASED [None]
  - BLOOD PRESSURE DIASTOLIC DECREASED [None]
  - ECCHYMOSIS [None]
  - THROMBOCYTOPENIA [None]
  - BLOOD UREA INCREASED [None]
  - BLOOD CALCIUM DECREASED [None]
  - RED BLOOD CELL SCHISTOCYTES PRESENT [None]
  - METASTASES TO BONE [None]
  - ASTHENIA [None]
  - NEOPLASM PROGRESSION [None]
  - NORMOCHROMIC NORMOCYTIC ANAEMIA [None]
  - HYPOPHAGIA [None]
  - DIARRHOEA [None]
  - HYPOVOLAEMIA [None]
  - ABDOMINAL PAIN [None]
  - BLOOD CREATININE INCREASED [None]
  - DEHYDRATION [None]
  - VOMITING [None]
  - CONFUSIONAL STATE [None]
  - ELLIPTOCYTOSIS [None]
  - CLOSTRIDIAL INFECTION [None]
  - HYPOTENSION [None]
  - ORTHOSTATIC INTOLERANCE [None]
  - NAUSEA [None]
  - GASTROINTESTINAL SOUNDS ABNORMAL [None]
  - MULTIPLE MYELOMA [None]
  - FOOD INTOLERANCE [None]
  - NEUROPATHY PERIPHERAL [None]
  - FLATULENCE [None]
  - ABDOMINAL DISTENSION [None]
  - BLOOD GLUCOSE INCREASED [None]
  - AMNESIA [None]
  - PAIN OF SKIN [None]
  - TACHYCARDIA [None]
  - ABDOMINAL TENDERNESS [None]
